FAERS Safety Report 9729700 (Version 1)
Quarter: 2013Q4

REPORT INFORMATION
  Report Type: Spontaneous
  Country: US (occurrence: US)
  Receive Date: 20131204
  Receipt Date: 20131204
  Transmission Date: 20140711
  Serious: No
  Sender: FDA-Public Use
  Company Number: US-GILEAD-2009-0021725

PATIENT
  Sex: Female
  Weight: 63.5 kg

DRUGS (15)
  1. LETAIRIS [Suspect]
     Indication: PULMONARY ARTERIAL HYPERTENSION
     Route: 048
     Dates: start: 20081212
  2. REVATIO [Concomitant]
  3. WARFARIN [Concomitant]
  4. LASIX [Concomitant]
  5. SPIRONOLACTONE [Concomitant]
  6. DIGOXIN [Concomitant]
  7. METOPROLOL [Concomitant]
  8. LOMOTIL [Concomitant]
  9. QUINAPRIL [Concomitant]
  10. METOCLOPRAMIDE [Concomitant]
  11. IMODIUM [Concomitant]
  12. ACIPHEX [Concomitant]
  13. TYLENOL EX-STR [Concomitant]
  14. MULTIVITAMIN [Concomitant]
  15. PROBIOTIC ACIDOPHILUS [Concomitant]

REACTIONS (1)
  - Sinus disorder [Unknown]
